FAERS Safety Report 13166045 (Version 1)
Quarter: 2017Q1

REPORT INFORMATION
  Report Type: Spontaneous
  Country: US (occurrence: US)
  Receive Date: 20170127
  Receipt Date: 20170127
  Transmission Date: 20170428
  Serious: Yes (Hospitalization)
  Sender: FDA-Public Use
  Company Number: None

PATIENT
  Age: 61 Year
  Sex: Female
  Weight: 96.8 kg

DRUGS (1)
  1. DOXYLAMINE [Suspect]
     Active Substance: DOXYLAMINE
     Indication: INSOMNIA
     Route: 048
     Dates: start: 20161228, end: 20161228

REACTIONS (3)
  - Tachycardia [None]
  - Seizure [None]
  - Hypertension [None]

NARRATIVE: CASE EVENT DATE: 20161228
